FAERS Safety Report 6162669-3 (Version None)
Quarter: 2009Q2

REPORT INFORMATION
  Report Type: 
  Country: None (occurrence: None)
  Receive Date: 20090421
  Receipt Date: 20081219
  Transmission Date: 20091009
  Serious: No
  Sender: FDA-Public Use
  Company Number: US-ASTRAZENECA-2008UW28810

PATIENT
  Age: 61 Year
  Sex: Male

DRUGS (2)
  1. CASODEX [Suspect]
     Dosage: ONCE DAILY
     Route: 048
     Dates: end: 20081121
  2. CASODEX [Suspect]
     Dosage: TWICE DAILY
     Route: 048
     Dates: start: 20081122

REACTIONS (2)
  - CONFUSIONAL STATE [None]
  - INCORRECT DOSE ADMINISTERED [None]
